FAERS Safety Report 10427815 (Version 1)
Quarter: 2014Q3

REPORT INFORMATION
  Report Type: Spontaneous
  Country: US (occurrence: US)
  Receive Date: 20140903
  Receipt Date: 20140903
  Transmission Date: 20150326
  Serious: No
  Sender: FDA-Public Use
  Company Number: US-ASTRAZENECA-2014SE63880

PATIENT
  Age: 72 Year
  Sex: Female
  Weight: 50.8 kg

DRUGS (6)
  1. NEXIUM [Suspect]
     Active Substance: ESOMEPRAZOLE MAGNESIUM
     Indication: GASTROOESOPHAGEAL REFLUX DISEASE
     Dosage: UNK DAILY
     Route: 048
     Dates: start: 20140818
  2. SIMVASTATIN. [Concomitant]
     Active Substance: SIMVASTATIN
     Indication: BLOOD CHOLESTEROL ABNORMAL
     Route: 048
     Dates: start: 2013
  3. NEXIUM [Suspect]
     Active Substance: ESOMEPRAZOLE MAGNESIUM
     Indication: GASTROOESOPHAGEAL REFLUX DISEASE
     Route: 048
     Dates: start: 2013
  4. BIOTIN [Concomitant]
     Active Substance: BIOTIN
     Indication: NAIL DISORDER
     Dosage: 5000 MCG DAILY
     Route: 048
     Dates: start: 201405
  5. BIOTIN [Concomitant]
     Active Substance: BIOTIN
     Indication: CONTUSION
     Dosage: 5000 MCG DAILY
     Route: 048
     Dates: start: 201405
  6. VITAMIN B12 [Concomitant]
     Active Substance: CYANOCOBALAMIN
     Indication: CONTUSION
     Route: 048
     Dates: start: 201405

REACTIONS (5)
  - Choking sensation [Unknown]
  - Productive cough [Unknown]
  - Drug ineffective [Unknown]
  - Vitamin B12 decreased [Unknown]
  - Intentional product misuse [Unknown]

NARRATIVE: CASE EVENT DATE: 201408
